FAERS Safety Report 9332807 (Version 1)
Quarter: 2013Q2

REPORT INFORMATION
  Report Type: Spontaneous
  Country: JP (occurrence: JP)
  Receive Date: 20130606
  Receipt Date: 20130606
  Transmission Date: 20140414
  Serious: Yes (Other)
  Sender: FDA-Public Use
  Company Number: JP-BRACCO-007127

PATIENT
  Age: 81 Year
  Sex: Female

DRUGS (4)
  1. IOPAMIDOL [Suspect]
     Indication: BALLOON-OCCLUDED RETROGRADE TRANSVENOUS OBLITERATION
     Dosage: MIXTURE OF 10 PERCENT ETHANOLAMINE OLEATE AND SAME VOLUME IOPAMIDOL
  2. GLUCOSE [Concomitant]
  3. HAPTOGLOBINS [Concomitant]
     Indication: RENAL FAILURE
  4. ETHANOLAMINE OLEATE [Suspect]
     Indication: BALLOON-OCCLUDED RETROGRADE TRANSVENOUS OBLITERATION
     Dosage: MIXTURE OF 10 PERCENT ETHANOLAMINE OLEATE AND SAME VOLUME IOPAMIDOL

REACTIONS (3)
  - Stress cardiomyopathy [Unknown]
  - Portal vein thrombosis [Unknown]
  - Ascites [Unknown]
